FAERS Safety Report 9707320 (Version 1)
Quarter: 2013Q4

REPORT INFORMATION
  Report Type: Spontaneous
  Country: US (occurrence: US)
  Receive Date: 20131125
  Receipt Date: 20131125
  Transmission Date: 20140711
  Serious: No
  Sender: FDA-Public Use
  Company Number: US-GLAXOSMITHKLINE-A1011458A

PATIENT
  Age: 49 Year
  Sex: Male

DRUGS (2)
  1. FLOVENT [Suspect]
     Indication: ASTHMA
     Dosage: 1PUFF FIVE TIMES PER DAY
     Route: 055
     Dates: start: 20130208
  2. VENTOLIN HFA [Concomitant]

REACTIONS (2)
  - Overdose [Recovered/Resolved]
  - Chest discomfort [Unknown]
